FAERS Safety Report 12167228 (Version 1)
Quarter: 2016Q1

REPORT INFORMATION
  Report Type: Spontaneous
  Country: US (occurrence: US)
  Receive Date: 20160310
  Receipt Date: 20160310
  Transmission Date: 20160526
  Serious: No
  Sender: FDA-Public Use
  Company Number: US-BAYER-2016-047751

PATIENT
  Age: 60 Year
  Sex: Male
  Weight: 158.73 kg

DRUGS (1)
  1. MIRALAX [Suspect]
     Active Substance: POLYETHYLENE GLYCOL 3350
     Indication: CONSTIPATION
     Dosage: 1 DF, UNK - ONLY USED 2 TIMES
     Route: 048
     Dates: start: 201602, end: 201602

REACTIONS (2)
  - Anorectal discomfort [None]
  - Hypersensitivity [None]
